FAERS Safety Report 8351333-8 (Version None)
Quarter: 2012Q2

REPORT INFORMATION
  Report Type: 
  Country: None (occurrence: None)
  Receive Date: 20120510
  Receipt Date: 20120501
  Transmission Date: 20120825
  Serious: Yes (Other)
  Sender: FDA-Public Use
  Company Number: US-ASTRAZENECA-2011SE56452

PATIENT
  Age: 34 Year
  Sex: Female
  Weight: 90.7 kg

DRUGS (16)
  1. INDERAL [Suspect]
  2. ALBUTEROL [Concomitant]
  3. ATENOLOL [Suspect]
     Route: 048
  4. MAGNESIUM [Concomitant]
  5. AMBIEN [Concomitant]
  6. MAXZIDE [Concomitant]
  7. ATENOLOL [Suspect]
     Route: 048
  8. SEROQUEL [Suspect]
     Indication: BIPOLAR I DISORDER
     Route: 048
     Dates: start: 19980101
  9. XANAX [Concomitant]
     Indication: PANIC ATTACK
  10. ELAVIL [Concomitant]
  11. ADVAIR DISKUS 100/50 [Concomitant]
     Indication: ASTHMA
  12. VOLTAREN [Concomitant]
     Indication: ARTHRALGIA
  13. XANAX [Concomitant]
     Indication: ANXIETY
  14. VOLTAREN [Concomitant]
     Indication: BACK PAIN
  15. SEROQUEL [Suspect]
     Indication: BIPOLAR DISORDER
     Route: 048
     Dates: start: 19980101
  16. LYRICA [Concomitant]
     Dates: start: 20060101

REACTIONS (27)
  - SPEECH DISORDER [None]
  - CHEST PAIN [None]
  - OEDEMA PERIPHERAL [None]
  - HYPOAESTHESIA [None]
  - STRESS [None]
  - COLD SWEAT [None]
  - FATIGUE [None]
  - AFFECT LABILITY [None]
  - ACTIVITIES OF DAILY LIVING IMPAIRED [None]
  - TUNNEL VISION [None]
  - DEPRESSION [None]
  - MYOCARDIAL INFARCTION [None]
  - PHARYNGITIS STREPTOCOCCAL [None]
  - HEART RATE INCREASED [None]
  - NASOPHARYNGITIS [None]
  - ANTISOCIAL BEHAVIOUR [None]
  - ALOPECIA [None]
  - MEMORY IMPAIRMENT [None]
  - VENTRICULAR TACHYCARDIA [None]
  - PANIC ATTACK [None]
  - EMOTIONAL DISORDER [None]
  - SINUS TACHYCARDIA [None]
  - CRYING [None]
  - DIZZINESS [None]
  - INTENTIONAL DRUG MISUSE [None]
  - WEIGHT FLUCTUATION [None]
  - CARDIAC DISORDER [None]
